FAERS Safety Report 13909702 (Version 1)
Quarter: 2017Q3

REPORT INFORMATION
  Report Type: Other
  Country: CA (occurrence: CA)
  Receive Date: 20170828
  Receipt Date: 20170828
  Transmission Date: 20171127
  Serious: Yes (Hospitalization, Other)
  Sender: FDA-Public Use
  Company Number: CA-APOTEX-2017AP016953

PATIENT
  Sex: Female

DRUGS (41)
  1. ENBREL [Suspect]
     Active Substance: ETANERCEPT
     Indication: PAIN
  2. METHOTREXATE. [Suspect]
     Active Substance: METHOTREXATE
     Indication: MOBILITY DECREASED
  3. NAPROSYN [Suspect]
     Active Substance: NAPROXEN
     Indication: MOBILITY DECREASED
  4. GOLD [Suspect]
     Active Substance: GOLD
     Indication: PAIN
  5. MOTRIN [Suspect]
     Active Substance: IBUPROFEN
     Indication: MOBILITY DECREASED
  6. MOTRIN [Suspect]
     Active Substance: IBUPROFEN
     Indication: JOINT STIFFNESS
  7. PLAQUENIL                          /00072602/ [Suspect]
     Active Substance: HYDROXYCHLOROQUINE DIPHOSPHATE
     Indication: RHEUMATOID ARTHRITIS
     Route: 065
  8. PLAQUENIL                          /00072602/ [Suspect]
     Active Substance: HYDROXYCHLOROQUINE DIPHOSPHATE
     Indication: JOINT STIFFNESS
  9. ACETYLSALICYLIC ACID W/CLOPIDOGREL [Suspect]
     Active Substance: ASPIRIN\CLOPIDOGREL
     Indication: RHEUMATOID ARTHRITIS
     Route: 065
  10. APO-TRAMADOL [Suspect]
     Active Substance: TRAMADOL
     Indication: PRODUCT USED FOR UNKNOWN INDICATION
     Route: 065
  11. ARAVA [Suspect]
     Active Substance: LEFLUNOMIDE
     Indication: JOINT STIFFNESS
  12. ENBREL [Suspect]
     Active Substance: ETANERCEPT
     Indication: MOBILITY DECREASED
  13. HUMIRA [Suspect]
     Active Substance: ADALIMUMAB
     Indication: PAIN
  14. GOLD [Suspect]
     Active Substance: GOLD
     Indication: RHEUMATOID ARTHRITIS
     Route: 065
  15. HUMIRA [Suspect]
     Active Substance: ADALIMUMAB
     Indication: MOBILITY DECREASED
  16. HUMIRA [Suspect]
     Active Substance: ADALIMUMAB
     Indication: JOINT STIFFNESS
  17. NAPROSYN [Suspect]
     Active Substance: NAPROXEN
     Indication: RHEUMATOID ARTHRITIS
     Route: 065
  18. NAPROSYN [Suspect]
     Active Substance: NAPROXEN
     Indication: PAIN
  19. ACETYLSALICYLIC ACID W/CLOPIDOGREL [Suspect]
     Active Substance: ASPIRIN\CLOPIDOGREL
     Indication: JOINT STIFFNESS
  20. APO-DICLOFENAC [Suspect]
     Active Substance: DICLOFENAC
     Indication: JOINT STIFFNESS
  21. GOLD [Suspect]
     Active Substance: GOLD
     Indication: MOBILITY DECREASED
  22. METHOTREXATE. [Suspect]
     Active Substance: METHOTREXATE
     Indication: PAIN
  23. APO-DICLOFENAC [Suspect]
     Active Substance: DICLOFENAC
     Indication: RHEUMATOID ARTHRITIS
     Route: 065
  24. APO-DICLOFENAC [Suspect]
     Active Substance: DICLOFENAC
     Indication: PAIN
  25. ARAVA [Suspect]
     Active Substance: LEFLUNOMIDE
     Indication: RHEUMATOID ARTHRITIS
     Route: 065
  26. ARAVA [Suspect]
     Active Substance: LEFLUNOMIDE
     Indication: MOBILITY DECREASED
  27. ENBREL [Suspect]
     Active Substance: ETANERCEPT
     Indication: JOINT STIFFNESS
  28. HUMIRA [Suspect]
     Active Substance: ADALIMUMAB
     Indication: RHEUMATOID ARTHRITIS
     Route: 065
  29. METHOTREXATE. [Suspect]
     Active Substance: METHOTREXATE
     Indication: JOINT STIFFNESS
  30. MOTRIN [Suspect]
     Active Substance: IBUPROFEN
     Indication: PAIN
  31. ACETYLSALICYLIC ACID W/CLOPIDOGREL [Suspect]
     Active Substance: ASPIRIN\CLOPIDOGREL
     Indication: PAIN
  32. ACETYLSALICYLIC ACID W/CLOPIDOGREL [Suspect]
     Active Substance: ASPIRIN\CLOPIDOGREL
     Indication: MOBILITY DECREASED
  33. APO-DICLOFENAC [Suspect]
     Active Substance: DICLOFENAC
     Indication: MOBILITY DECREASED
  34. MOTRIN [Suspect]
     Active Substance: IBUPROFEN
     Indication: RHEUMATOID ARTHRITIS
     Route: 065
  35. NAPROSYN [Suspect]
     Active Substance: NAPROXEN
     Indication: JOINT STIFFNESS
  36. PLAQUENIL                          /00072602/ [Suspect]
     Active Substance: HYDROXYCHLOROQUINE DIPHOSPHATE
     Indication: MOBILITY DECREASED
  37. ARAVA [Suspect]
     Active Substance: LEFLUNOMIDE
     Indication: PAIN
  38. ENBREL [Suspect]
     Active Substance: ETANERCEPT
     Indication: RHEUMATOID ARTHRITIS
     Route: 065
  39. GOLD [Suspect]
     Active Substance: GOLD
     Indication: JOINT STIFFNESS
  40. METHOTREXATE. [Suspect]
     Active Substance: METHOTREXATE
     Indication: RHEUMATOID ARTHRITIS
     Route: 065
  41. PLAQUENIL                          /00072602/ [Suspect]
     Active Substance: HYDROXYCHLOROQUINE DIPHOSPHATE
     Indication: PAIN

REACTIONS (13)
  - Nausea [Unknown]
  - Decreased appetite [Unknown]
  - Eating disorder [Unknown]
  - Abdominal discomfort [Unknown]
  - Ear infection [Unknown]
  - Dizziness [Unknown]
  - Pharyngitis [Unknown]
  - Deafness [Unknown]
  - Abdominal pain upper [Unknown]
  - Headache [Unknown]
  - Weight decreased [Unknown]
  - Off label use [Unknown]
  - Vomiting [Unknown]
